FAERS Safety Report 9779558 (Version 5)
Quarter: 2014Q2

REPORT INFORMATION
  Report Type: Spontaneous
  Country: GB (occurrence: GB)
  Receive Date: 20131223
  Receipt Date: 20140506
  Transmission Date: 20141212
  Serious: Yes (Hospitalization)
  Sender: FDA-Public Use
  Company Number: GB-PFIZER INC-2013364857

PATIENT
  Age: 70 Year
  Sex: Male

DRUGS (11)
  1. IBUPROFEN [Suspect]
     Indication: HIP ARTHROPLASTY
     Dosage: 400 MG, 3X/DAY
  2. ASPIRIN [Concomitant]
     Dosage: UNK
     Dates: end: 2013
  3. AMLODIPINE [Concomitant]
     Dosage: UNK
     Dates: end: 2013
  4. LEVOTHYROXINE [Concomitant]
     Dosage: UNK
  5. AMITRIPTYLINE [Concomitant]
     Dosage: UNK
  6. BENDROFLUMETHIAZIDE [Concomitant]
     Dosage: UNK
  7. ATORVASTATIN [Concomitant]
     Dosage: UNK
  8. PARACETAMOL [Concomitant]
  9. MORPHINE SULFATE [Concomitant]
     Dosage: UNK
  10. ENALAPRIL [Concomitant]
     Dosage: UNK
  11. LATANOPROST [Concomitant]
     Dosage: UNK

REACTIONS (2)
  - Upper gastrointestinal haemorrhage [Recovering/Resolving]
  - Ulcer [Unknown]
